FAERS Safety Report 9880562 (Version 1)
Quarter: 2014Q1

REPORT INFORMATION
  Report Type: Spontaneous
  Country: US (occurrence: US)
  Receive Date: 20140207
  Receipt Date: 20140207
  Transmission Date: 20141002
  Serious: No
  Sender: FDA-Public Use
  Company Number: US-US-EMD SERONO, INC.-7266449

PATIENT
  Sex: Female

DRUGS (1)
  1. REBIF [Suspect]
     Indication: PRODUCT USED FOR UNKNOWN INDICATION
     Route: 058
     Dates: start: 201009

REACTIONS (5)
  - Urinary tract infection [Unknown]
  - Blood potassium decreased [Unknown]
  - Vitamin B complex deficiency [Unknown]
  - Pain in extremity [Unknown]
  - Pyrexia [Unknown]
